FAERS Safety Report 8450708-6 (Version None)
Quarter: 2012Q2

REPORT INFORMATION
  Report Type: 
  Country: None (occurrence: None)
  Receive Date: 20120620
  Receipt Date: 20120614
  Transmission Date: 20120825
  Serious: Yes (Other)
  Sender: FDA-Public Use
  Company Number: US-PFIZER INC-2012143581

PATIENT
  Sex: Female

DRUGS (1)
  1. PRISTIQ [Suspect]
     Dosage: UNK

REACTIONS (37)
  - MENTAL IMPAIRMENT [None]
  - PARAESTHESIA [None]
  - NERVOUSNESS [None]
  - THINKING ABNORMAL [None]
  - TINNITUS [None]
  - HALLUCINATION, VISUAL [None]
  - BALANCE DISORDER [None]
  - SENSORY DISTURBANCE [None]
  - DIARRHOEA [None]
  - FLATULENCE [None]
  - EMOTIONAL DISORDER [None]
  - VISUAL IMPAIRMENT [None]
  - DYSPEPSIA [None]
  - LETHARGY [None]
  - AKATHISIA [None]
  - DEPERSONALISATION [None]
  - ABDOMINAL PAIN UPPER [None]
  - DIZZINESS [None]
  - FATIGUE [None]
  - INFLUENZA LIKE ILLNESS [None]
  - IRRITABILITY [None]
  - SPEECH DISORDER [None]
  - MIGRAINE [None]
  - HEADACHE [None]
  - NAUSEA [None]
  - SLEEP DISORDER [None]
  - ILLUSION [None]
  - VISION BLURRED [None]
  - DRUG WITHDRAWAL SYNDROME [None]
  - DISTURBANCE IN ATTENTION [None]
  - HOSTILITY [None]
  - INSOMNIA [None]
  - TREMOR [None]
  - ABNORMAL DREAMS [None]
  - CONSTIPATION [None]
  - COORDINATION ABNORMAL [None]
  - RESTLESSNESS [None]
